FAERS Safety Report 9698690 (Version 3)
Quarter: 2014Q1

REPORT INFORMATION
  Report Type: Report from Study
  Country: JP (occurrence: JP)
  Receive Date: 20131120
  Receipt Date: 20140129
  Transmission Date: 20141002
  Serious: Yes (Life-Threatening, Hospitalization)
  Sender: FDA-Public Use
  Company Number: JP-PFIZER INC-2013327036

PATIENT
  Age: 83 Year
  Sex: Female
  Weight: 54 kg

DRUGS (15)
  1. CRIZOTINIB [Suspect]
     Indication: NON-SMALL CELL LUNG CANCER
     Dosage: 250 MG, 2X/DAY
     Route: 048
     Dates: start: 20130705, end: 20130719
  2. AMLODIPINE [Concomitant]
     Dosage: 2.5 MG, 1X/DAY
     Route: 048
  3. CLARITHROMYCIN [Concomitant]
     Dosage: 200 MG, 2X/DAY
     Route: 048
     Dates: end: 20130719
  4. ZYLORIC ^GLAXO WELLCOME^ [Concomitant]
     Dosage: 100 MG, 1X/DAY
     Route: 048
  5. LIPITOR [Concomitant]
     Dosage: 10 MG, 1X/DAY
     Route: 048
  6. PREDONINE [Concomitant]
     Dosage: 5 MG, 1X/DAY
     Route: 048
  7. OMEPRAZON [Concomitant]
     Dosage: 20 MG, 1X/DAY
     Route: 048
  8. SELBEX [Concomitant]
     Dosage: 50 MG, 3X/DAY
     Route: 048
  9. RIMATIL [Concomitant]
     Dosage: 100 MG, 3X/DAY
     Route: 048
     Dates: end: 20130726
  10. BLOPRESS [Concomitant]
     Dosage: 8 MG, 1X/DAY
     Route: 048
  11. LENDORMIN [Concomitant]
     Dosage: 0.25 MG, 1X/DAY
     Route: 048
  12. CERCINE [Concomitant]
     Dosage: 2 MG, 1X/DAY
     Route: 048
  13. GANATON [Concomitant]
     Dosage: 50 MG, 3X/DAY
     Route: 048
  14. HOKUNALIN [Concomitant]
     Dosage: 2 MG, 1X/DAY
     Route: 062
  15. SEROQUEL [Concomitant]
     Dosage: 25 MG, 1X/DAY
     Route: 048

REACTIONS (3)
  - Febrile neutropenia [Recovered/Resolved]
  - Decreased appetite [Recovered/Resolved]
  - Liver disorder [Recovered/Resolved]
